FAERS Safety Report 12492682 (Version 1)
Quarter: 2016Q2

REPORT INFORMATION
  Report Type: Spontaneous
  Country: CH (occurrence: CH)
  Receive Date: 20160623
  Receipt Date: 20160623
  Transmission Date: 20160815
  Serious: Yes (Life-Threatening, Hospitalization)
  Sender: FDA-Public Use
  Company Number: CH-PFIZER INC-2016303180

PATIENT
  Age: 78 Year
  Sex: Female
  Weight: 66 kg

DRUGS (12)
  1. DEANXIT [Concomitant]
     Active Substance: FLUPENTIXOL DIHYDROCHLORIDE\MELITRACEN HYDROCHLORIDE
     Indication: DEPRESSION
     Dosage: 1 DF, 1X/DAY (1-0-0-0)
     Route: 048
  2. VITAMIN D3 WILD [Concomitant]
     Dosage: 15 GTT, 1X/DAY (0-0-15-0)
     Route: 048
  3. TRANXILIUM [Concomitant]
     Active Substance: CLORAZEPATE DIPOTASSIUM
     Dosage: 10 MG, 1X/DAY
     Route: 048
  4. MIANSERIN-MEPHA [Concomitant]
     Indication: DEPRESSION
     Dosage: 15 MG, 1X/DAY (30 MG, 0-0-0.5-0)
     Route: 048
  5. DEANXIT [Concomitant]
     Active Substance: FLUPENTIXOL DIHYDROCHLORIDE\MELITRACEN HYDROCHLORIDE
     Indication: ANXIETY DISORDER
  6. FRAGMIN [Suspect]
     Active Substance: DALTEPARIN SODIUM
     Indication: PROPHYLAXIS
     Dosage: 5000 IU, SINGLE
     Route: 058
     Dates: start: 20160415, end: 20160416
  7. SUPRACYCLIN /00055705/ [Suspect]
     Active Substance: DOXYCYCLINE
     Indication: BRONCHITIS
     Dosage: 200 MG, 1X/DAY (0-0-1-0)
     Route: 048
     Dates: start: 20160405, end: 20160413
  8. ROCEPHIN [Suspect]
     Active Substance: CEFTRIAXONE SODIUM
     Indication: CYSTITIS BACTERIAL
     Dosage: 2 G, DAILY
     Route: 042
     Dates: start: 20160415, end: 20160416
  9. TORASEMID [Concomitant]
     Active Substance: TORSEMIDE
     Indication: OEDEMA PERIPHERAL
     Dosage: 5 MG, 2X/DAY (2-0-0-0)
     Route: 048
  10. ISOPTIN [Concomitant]
     Active Substance: VERAPAMIL HYDROCHLORIDE
     Indication: HYPERTENSION
     Dosage: 80 MG, 1X/DAY (1-0-0-0)
     Route: 048
  11. AKINETON [Concomitant]
     Active Substance: BIPERIDEN HYDROCHLORIDE
     Indication: MOVEMENT DISORDER
     Dosage: 1 MG, 2X/DAY (2MG, 1/2-0-1/2-0)
     Route: 048
  12. ESOMEPRAZOL AXAPHARM [Concomitant]
     Dosage: 20 MG, 1X/DAY (0-0-1-0)
     Route: 048

REACTIONS (5)
  - Leukopenia [Recovering/Resolving]
  - Pancytopenia [Recovered/Resolved]
  - Colitis [None]
  - Colon neoplasm [None]
  - Thrombocytopenia [Recovering/Resolving]

NARRATIVE: CASE EVENT DATE: 20160415
